FAERS Safety Report 25800625 (Version 2)
Quarter: 2025Q4

REPORT INFORMATION
  Report Type: Spontaneous
  Country: US (occurrence: US)
  Receive Date: 20250915
  Receipt Date: 20251211
  Transmission Date: 20260117
  Serious: No
  Sender: SANOFI AVENTIS
  Company Number: US-SA-2025SA173698

PATIENT
  Age: 72 Year
  Sex: Female

DRUGS (1)
  1. DUPIXENT [Suspect]
     Active Substance: DUPILUMAB
     Indication: Dermatitis atopic
     Dosage: 300 MG, QOW
     Route: 058
     Dates: start: 202503

REACTIONS (7)
  - Stress [Unknown]
  - Pruritus [Unknown]
  - Skin swelling [Unknown]
  - Pain in extremity [Unknown]
  - Dry eye [Recovered/Resolved]
  - Arthralgia [Not Recovered/Not Resolved]
  - Dermatitis atopic [Unknown]

NARRATIVE: CASE EVENT DATE: 20250101
